FAERS Safety Report 18359141 (Version 1)
Quarter: 2020Q4

REPORT INFORMATION
  Report Type: Spontaneous
  Country: US (occurrence: US)
  Receive Date: 20201008
  Receipt Date: 20201008
  Transmission Date: 20210114
  Serious: No
  Sender: FDA-Public Use
  Company Number: US-AUROBINDO-AUR-APL-2020-025254

PATIENT
  Sex: Male

DRUGS (1)
  1. OMEPRAZOLE 20MG [Suspect]
     Active Substance: OMEPRAZOLE
     Indication: DYSPEPSIA
     Dosage: 20 MILLIGRAM, TWO TIMES A DAY
     Route: 048

REACTIONS (1)
  - Drug ineffective [Unknown]
